FAERS Safety Report 6878725-8 (Version None)
Quarter: 2010Q3

REPORT INFORMATION
  Report Type: 
  Country: None (occurrence: None)
  Receive Date: 20100728
  Receipt Date: 20100719
  Transmission Date: 20110219
  Serious: Yes (Other)
  Sender: FDA-Public Use
  Company Number: GXKR2010SG08029

PATIENT
  Age: 51 Year

DRUGS (2)
  1. ALENDRONIC ACID (NGX) [Suspect]
     Dosage: 70 MG, QW
     Route: 065
  2. PREDNISOLONE [Concomitant]
     Indication: PROPHYLAXIS AGAINST TRANSPLANT REJECTION

REACTIONS (3)
  - BONE OPERATION [None]
  - FEMUR FRACTURE [None]
  - INTERNAL FIXATION OF FRACTURE [None]
